FAERS Safety Report 8340409-7 (Version None)
Quarter: 2012Q2

REPORT INFORMATION
  Report Type: 
  Country: None (occurrence: None)
  Receive Date: 20120507
  Receipt Date: 20120507
  Transmission Date: 20120825
  Serious: No
  Sender: FDA-Public Use
  Company Number: None

PATIENT
  Age: 56 Year
  Sex: Female
  Weight: 92.079 kg

DRUGS (1)
  1. SULFAMETHOXAZOLE AND TRIMETHOPRIM DOUBLE STRENGTH [Suspect]
     Indication: INJECTION SITE INFECTION
     Dosage: |DOSAGETEXT: 1 TABLET||STRENGTH: 800-160MG||FREQ: TWICE DAILY||ROUTE: ORAL|
     Route: 048
     Dates: start: 20120414, end: 20120414

REACTIONS (3)
  - VAGINAL HAEMORRHAGE [None]
  - VAGINAL DISCHARGE [None]
  - VAGINISMUS [None]
